FAERS Safety Report 15159504 (Version 2)
Quarter: 2019Q1

REPORT INFORMATION
  Report Type: Spontaneous
  Country: JP (occurrence: JP)
  Receive Date: 20180718
  Receipt Date: 20190221
  Transmission Date: 20190417
  Serious: Yes (Hospitalization, Other)
  Sender: FDA-Public Use
  Company Number: JP-009507513-1807JPN006279

PATIENT
  Age: 70 Year
  Sex: Female
  Weight: 76 kg

DRUGS (16)
  1. APREPITANT. [Suspect]
     Active Substance: APREPITANT
     Indication: PROPHYLAXIS OF NAUSEA AND VOMITING
     Dosage: 125 MG, ONCE A DAY; DAY 1
     Route: 048
  2. DOXYCYCLINE. [Concomitant]
     Active Substance: DOXYCYCLINE
  3. SENNOSIDES. [Concomitant]
     Active Substance: SENNOSIDES
     Dosage: UNK
  4. APREPITANT. [Suspect]
     Active Substance: APREPITANT
     Dosage: 80 MG, ONCE A DAY, DAY 2 TO DAY 3
     Route: 048
  5. BEVACIZUMAB. [Concomitant]
     Active Substance: BEVACIZUMAB
  6. ROSUVASTATIN. [Concomitant]
     Active Substance: ROSUVASTATIN
  7. TS-1 [Concomitant]
     Active Substance: GIMERACIL\OTERACIL\TEGAFUR
  8. UFT [Concomitant]
     Active Substance: TEGAFUR\URACIL
  9. MAGNESIUM OXIDE. [Concomitant]
     Active Substance: MAGNESIUM OXIDE
  10. DEXAMETHASONE. [Concomitant]
     Active Substance: DEXAMETHASONE
  11. FLUOROURACIL SODIUM [Concomitant]
     Active Substance: FLUOROURACIL SODIUM
  12. PANITUMUMAB [Concomitant]
     Active Substance: PANITUMUMAB
  13. GRANISETRON [Concomitant]
     Active Substance: GRANISETRON
     Dosage: UNK
  14. IRINOTECAN HYDROCHLORIDE. [Concomitant]
     Active Substance: IRINOTECAN HYDROCHLORIDE
  15. OXALIPLATIN. [Concomitant]
     Active Substance: OXALIPLATIN
  16. LEVOLEUCOVORIN CALCIUM. [Concomitant]
     Active Substance: LEVOLEUCOVORIN CALCIUM

REACTIONS (12)
  - Diarrhoea [Unknown]
  - Paronychia [Unknown]
  - Deep vein thrombosis [Unknown]
  - Fatigue [Unknown]
  - Dermatitis acneiform [Unknown]
  - Hydronephrosis [Unknown]
  - Nausea [Unknown]
  - Bone marrow failure [Unknown]
  - Metastases to liver [Unknown]
  - Metastases to ovary [Unknown]
  - Hypomagnesaemia [Unknown]
  - Metastases to peritoneum [Unknown]
